FAERS Safety Report 12624081 (Version 2)
Quarter: 2016Q4

REPORT INFORMATION
  Report Type: Spontaneous
  Country: FR (occurrence: FR)
  Receive Date: 20160804
  Receipt Date: 20161004
  Transmission Date: 20170207
  Serious: Yes (Other)
  Sender: FDA-Public Use
  Company Number: FR-ROCHE-1808130

PATIENT
  Age: 69 Year
  Sex: Female

DRUGS (14)
  1. AVASTIN [Suspect]
     Active Substance: BEVACIZUMAB
     Indication: RECTAL ADENOCARCINOMA
     Route: 042
     Dates: start: 20160418
  2. AVASTIN [Suspect]
     Active Substance: BEVACIZUMAB
     Route: 042
     Dates: start: 20160831
  3. CAMPTO [Suspect]
     Active Substance: IRINOTECAN
     Indication: RECTAL ADENOCARCINOMA
     Dosage: FORM STRENGTH: 20 MG/ML
     Route: 042
     Dates: start: 20160418
  4. FLUOROURACILE [Suspect]
     Active Substance: FLUOROURACIL
     Indication: RECTAL ADENOCARCINOMA
     Dosage: DURING 15 MINUTES?FORM STRENGTH: 50 MG/ML
     Route: 040
  5. BISOPROLOL [Concomitant]
     Active Substance: BISOPROLOL
     Dosage: 1 TABLET IN THE MORNING
     Route: 065
  6. ATORVASTATINE [Concomitant]
     Active Substance: ATORVASTATIN
     Dosage: 1 TABLET ON EVENING
     Route: 065
  7. FLUOROURACILE [Suspect]
     Active Substance: FLUOROURACIL
     Dosage: DURING 48 HOURS
     Route: 041
     Dates: start: 20160418
  8. KARDEGIC [Suspect]
     Active Substance: ASPIRIN LYSINE
     Indication: PRODUCT USED FOR UNKNOWN INDICATION
     Dosage: 1 PACK IN THE MORNING
     Route: 048
  9. FOLINIC ACID [Concomitant]
     Active Substance: LEUCOVORIN
  10. FLUOROURACILE [Suspect]
     Active Substance: FLUOROURACIL
     Route: 041
     Dates: start: 20160831
  11. PAROXETINE. [Concomitant]
     Active Substance: PAROXETINE
     Dosage: 1 TABLET IN THE EVENING
     Route: 065
  12. ALPRAZOLAM. [Concomitant]
     Active Substance: ALPRAZOLAM
     Dosage: 1 TABLET IN THE MORNING
     Route: 065
  13. AVASTIN [Suspect]
     Active Substance: BEVACIZUMAB
     Route: 042
     Dates: start: 20160831
  14. FLUOROURACILE [Suspect]
     Active Substance: FLUOROURACIL
     Route: 041
     Dates: start: 20160912

REACTIONS (1)
  - Vascular purpura [Recovered/Resolved]

NARRATIVE: CASE EVENT DATE: 20160912
